FAERS Safety Report 5292061-5 (Version None)
Quarter: 2007Q2

REPORT INFORMATION
  Report Type: 
  Country: None (occurrence: None)
  Receive Date: 20070403
  Receipt Date: 20070322
  Transmission Date: 20071010
  Serious: Yes (Life-Threatening)
  Sender: FDA-Public Use
  Company Number: 2007RR-06531

PATIENT
  Sex: Male

DRUGS (1)
  1. CODEINE PHOSPHATE (CODEINE) UNKNOWN [Suspect]
     Dosage: 150 MG, INTRAVENOUS
     Route: 042
     Dates: start: 20070226, end: 20070226

REACTIONS (2)
  - HEART RATE INCREASED [None]
  - HYPOTENSION [None]
